FAERS Safety Report 11310731 (Version 2)
Quarter: 2015Q3

REPORT INFORMATION
  Report Type: Report from Study
  Country: US (occurrence: US)
  Receive Date: 20150725
  Receipt Date: 20150910
  Transmission Date: 20151125
  Serious: No
  Sender: FDA-Public Use
  Company Number: PHEH2015US013753

PATIENT
  Sex: Male
  Weight: 104.31 kg

DRUGS (1)
  1. GILENYA [Suspect]
     Active Substance: FINGOLIMOD HYDROCHLORIDE
     Indication: MULTIPLE SCLEROSIS
     Dosage: 0.5 MG, QD
     Route: 048
     Dates: start: 20150317

REACTIONS (8)
  - Eyelid oedema [Not Recovered/Not Resolved]
  - Depression [Not Recovered/Not Resolved]
  - Dry eye [Unknown]
  - Vision blurred [Unknown]
  - Decreased interest [Unknown]
  - Insomnia [Unknown]
  - Gait disturbance [Recovering/Resolving]
  - Eye disorder [Not Recovered/Not Resolved]
